FAERS Safety Report 4995631-4 (Version None)
Quarter: 2006Q2

REPORT INFORMATION
  Report Type: 
  Country: None (occurrence: None)
  Receive Date: 20060504
  Receipt Date: 20060421
  Transmission Date: 20061013
  Serious: Yes (Hospitalization)
  Sender: FDA-Public Use
  Company Number: 2006054750

PATIENT
  Age: 43 Year
  Sex: Male

DRUGS (3)
  1. AZITHROMYCIN [Suspect]
     Indication: URETHRITIS
     Dosage: 500 MG, ORAL
     Route: 048
     Dates: start: 20060403
  2. CIPROFLOXACIN HCL [Suspect]
     Indication: URETHRITIS
     Dosage: 1000 MG, ORAL
     Route: 048
     Dates: start: 20060403
  3. ZANTAC [Concomitant]

REACTIONS (1)
  - PERSECUTORY DELUSION [None]
